FAERS Safety Report 8967600 (Version 1)
Quarter: 2012Q4

REPORT INFORMATION
  Report Type: 
  Country: US (occurrence: US)
  Receive Date: 20121217
  Receipt Date: 20121217
  Transmission Date: 20130627
  Serious: No
  Sender: FDA-Public Use
  Company Number: US-009507513-1212USA005286

PATIENT
  Age: 81 Year
  Sex: Male

DRUGS (1)
  1. TINACTIN [Suspect]

REACTIONS (1)
  - Burning sensation [Unknown]
